FAERS Safety Report 12557080 (Version 3)
Quarter: 2016Q3

REPORT INFORMATION
  Report Type: Spontaneous
  Country: CN (occurrence: CN)
  Receive Date: 20160714
  Receipt Date: 20160805
  Transmission Date: 20161109
  Serious: Yes (Hospitalization)
  Sender: FDA-Public Use
  Company Number: CN-ASTRAZENECA-2016SE52297

PATIENT
  Age: 67 Year
  Sex: Female

DRUGS (10)
  1. AMINO ACIDS [Concomitant]
     Active Substance: AMINO ACIDS
     Dates: start: 20160331, end: 20160406
  2. VITAMIN B [Concomitant]
     Active Substance: VITAMIN B
     Dates: start: 20160331, end: 20160406
  3. TALCID [Concomitant]
     Active Substance: HYDROTALCITE
     Indication: GASTRITIS PROPHYLAXIS
     Dosage: 2 TABLETS
  4. OMEPRAZOLE FOR INJECTION [Suspect]
     Active Substance: OMEPRAZOLE
     Dosage: DOSE AND FREQUENCY UNKNOWN.
     Route: 042
     Dates: start: 20160323, end: 20160326
  5. THYMIC PEPTIDE [Concomitant]
     Route: 041
     Dates: start: 20160331, end: 20160406
  6. NEXIUM [Suspect]
     Active Substance: ESOMEPRAZOLE MAGNESIUM
     Indication: GASTRITIS EROSIVE
     Route: 048
     Dates: start: 20160510
  7. SPIRULINA [Concomitant]
     Active Substance: SPIRULINA
     Dosage: 8 TABLETS DAILY
  8. LEVOFLOXACIN. [Concomitant]
     Active Substance: LEVOFLOXACIN
     Dates: start: 20160323, end: 20160331
  9. CEPHALOSPORIN [Concomitant]
     Active Substance: UNSPECIFIED INGREDIENT
     Dates: start: 20160323, end: 20160331
  10. NEXIUM [Suspect]
     Active Substance: ESOMEPRAZOLE MAGNESIUM
     Indication: GASTRITIS EROSIVE
     Route: 048
     Dates: start: 20160402

REACTIONS (8)
  - Dizziness [Recovering/Resolving]
  - Flatulence [Recovering/Resolving]
  - Drug ineffective [Recovering/Resolving]
  - Diarrhoea [Recovering/Resolving]
  - Gastrooesophageal reflux disease [Unknown]
  - Gastritis erosive [Unknown]
  - Abdominal discomfort [Recovering/Resolving]
  - Abdominal pain [Recovering/Resolving]

NARRATIVE: CASE EVENT DATE: 201603
